FAERS Safety Report 25580069 (Version 1)
Quarter: 2025Q3

REPORT INFORMATION
  Report Type: Spontaneous
  Country: US (occurrence: US)
  Receive Date: 20250718
  Receipt Date: 20250718
  Transmission Date: 20251021
  Serious: No
  Sender: NOVO NORDISK
  Company Number: US-NOVOPROD-1440372

PATIENT
  Age: 53 Year
  Sex: Female

DRUGS (2)
  1. WEGOVY [Suspect]
     Active Substance: SEMAGLUTIDE
     Indication: Product used for unknown indication
  2. LUMRYZ [Suspect]
     Active Substance: SODIUM OXYBATE
     Indication: Product used for unknown indication

REACTIONS (4)
  - Insomnia [Unknown]
  - Hunger [Unknown]
  - Feeling abnormal [Unknown]
  - Malabsorption [Unknown]
